FAERS Safety Report 25886428 (Version 1)
Quarter: 2025Q4

REPORT INFORMATION
  Report Type: Spontaneous
  Country: US (occurrence: None)
  Receive Date: 20251004
  Receipt Date: 20251004
  Transmission Date: 20260119
  Serious: No
  Sender: FDA-CTU
  Company Number: None

PATIENT
  Sex: Male

DRUGS (1)
  1. ROSUVASTATIN [Suspect]
     Active Substance: ROSUVASTATIN

REACTIONS (4)
  - Hyperhidrosis [None]
  - Diarrhoea [None]
  - Muscle spasms [None]
  - Dehydration [None]

NARRATIVE: CASE EVENT DATE: 20251003
